FAERS Safety Report 8425719-7 (Version None)
Quarter: 2012Q2

REPORT INFORMATION
  Report Type: 
  Country: None (occurrence: None)
  Receive Date: 20120611
  Receipt Date: 20120605
  Transmission Date: 20120825
  Serious: Yes (Hospitalization, Other)
  Sender: FDA-Public Use
  Company Number: PHHY2012BR049055

PATIENT
  Sex: Female
  Weight: 96 kg

DRUGS (5)
  1. METFORMIN HCL [Concomitant]
     Indication: DIABETES MELLITUS
     Dosage: 50 MG, UNK
  2. EXFORGE [Suspect]
     Indication: HYPERTENSION
     Dosage: 1 TABLET DAILY IN THE MORNING
     Route: 048
  3. ISOFLAVONE [Concomitant]
     Indication: HORMONE REPLACEMENT THERAPY
     Dosage: 50 MG, UNK
  4. INDAPAMIDE [Concomitant]
     Indication: HYPERTENSION
     Dosage: UNK
  5. ALPRAZOLAM [Concomitant]
     Indication: INSOMNIA
     Dosage: 0.5 MG, UNK

REACTIONS (5)
  - DIABETES MELLITUS [None]
  - INSOMNIA [None]
  - BLOOD URIC ACID INCREASED [None]
  - BLOOD GLUCOSE INCREASED [None]
  - NEPHROLITHIASIS [None]
